FAERS Safety Report 5305498-2 (Version None)
Quarter: 2007Q2

REPORT INFORMATION
  Report Type: 
  Country: None (occurrence: None)
  Receive Date: 20070424
  Receipt Date: 20070412
  Transmission Date: 20071010
  Serious: Yes (Hospitalization, Congenital Anomaly)
  Sender: FDA-Public Use
  Company Number: FR-JNJFOC-20070403037

PATIENT
  Sex: Male
  Weight: 3.06 kg

DRUGS (8)
  1. HALDOL [Suspect]
     Indication: DRUG EXPOSURE DURING PREGNANCY
  2. DOMPERIDONE [Suspect]
     Indication: DRUG EXPOSURE DURING PREGNANCY
  3. ATARAX [Suspect]
     Indication: DRUG EXPOSURE DURING PREGNANCY
  4. SPECIAFOLDINE [Concomitant]
     Indication: DRUG EXPOSURE DURING PREGNANCY
  5. VENTOLIN [Concomitant]
     Indication: DRUG EXPOSURE DURING PREGNANCY
  6. XANAX [Concomitant]
     Indication: DRUG EXPOSURE DURING PREGNANCY
  7. STILNOX [Concomitant]
     Indication: DRUG EXPOSURE DURING PREGNANCY
  8. AKINETON [Concomitant]
     Indication: DRUG EXPOSURE DURING PREGNANCY

REACTIONS (4)
  - AGITATION [None]
  - SYNDACTYLY [None]
  - TALIPES [None]
  - TREMOR NEONATAL [None]
